FAERS Safety Report 10928668 (Version 1)
Quarter: 2015Q1

REPORT INFORMATION
  Report Type: Spontaneous
  Country: US (occurrence: None)
  Receive Date: 20150318
  Receipt Date: 20150318
  Transmission Date: 20150721
  Serious: No
  Sender: FDA-Public Use
  Company Number: None

PATIENT
  Age: 81 Year
  Sex: Male
  Weight: 84.82 kg

DRUGS (8)
  1. ASPIRIN. [Concomitant]
     Active Substance: ASPIRIN
  2. FLOMAX [Concomitant]
     Active Substance: TAMSULOSIN HYDROCHLORIDE
  3. FISH OIL [Concomitant]
     Active Substance: FISH OIL
  4. EXELON PATCH [Suspect]
     Active Substance: RIVASTIGMINE
     Dosage: PATCH DAILY SKIN
     Route: 062
  5. LAMOTRINE [Concomitant]
  6. LAMMICAL [Concomitant]
  7. ZOCOR [Concomitant]
     Active Substance: SIMVASTATIN
  8. AVODART [Concomitant]
     Active Substance: DUTASTERIDE

REACTIONS (4)
  - Pruritus [None]
  - Seizure [None]
  - Amnesia [None]
  - Skin reaction [None]

NARRATIVE: CASE EVENT DATE: 201307
